FAERS Safety Report 8132378-X (Version None)
Quarter: 2012Q1

REPORT INFORMATION
  Report Type: 
  Country: None (occurrence: None)
  Receive Date: 20120213
  Receipt Date: 20120201
  Transmission Date: 20120608
  Serious: Yes (Hospitalization, Other)
  Sender: FDA-Public Use
  Company Number: US-ELI_LILLY_AND_COMPANY-US201011006146

PATIENT
  Sex: Female
  Weight: 40.816 kg

DRUGS (24)
  1. CALTRATE + D [Concomitant]
  2. OMEPRAZOLE [Concomitant]
     Dosage: 20 MG, UNKNOWN
  3. SIMVASTATIN [Concomitant]
     Dosage: 40 MG, UNKNOWN
  4. FORTEO [Suspect]
     Dosage: 20 UG, DAILY (1/D)
  5. FORTEO [Suspect]
     Dosage: 20 UG, DAILY (1/D)
  6. FORTEO [Suspect]
     Dosage: 20 UG, DAILY (1/D)
  7. FORTEO [Suspect]
     Dosage: 20 UG, QD
  8. VITAMIN B6 [Concomitant]
  9. FORTEO [Suspect]
     Indication: OSTEOPOROSIS
     Dosage: 20 UG, DAILY (1/D)
  10. FORTEO [Suspect]
     Dosage: 20 UG, QD
  11. FAMOTIDINE [Concomitant]
  12. WARFARIN SODIUM [Concomitant]
  13. FORTEO [Suspect]
     Dosage: 20 UG, DAILY (1/D)
  14. FORTEO [Suspect]
     Dosage: 20 UG, QD
  15. VITAMIN D [Concomitant]
  16. LISINOPRIL [Concomitant]
     Dosage: 10 MG, UNKNOWN
  17. VITAMIN E [Concomitant]
     Dosage: 400 U, TID
  18. AMLODIPINE [Concomitant]
     Dosage: 2.5 MG, QD
  19. HYDROXYZINE [Concomitant]
  20. PROCHLORPERAZINE [Concomitant]
  21. MEGACE [Concomitant]
  22. ARANESP [Concomitant]
     Indication: HAEMOGLOBIN DECREASED
  23. TRAMADOL HCL [Concomitant]
  24. COUMADIN [Concomitant]

REACTIONS (21)
  - THROMBOSIS [None]
  - OEDEMA PERIPHERAL [None]
  - RASH [None]
  - FALL [None]
  - FATIGUE [None]
  - INJECTION SITE HAEMATOMA [None]
  - ANAEMIA [None]
  - WART EXCISION [None]
  - TOOTH DISORDER [None]
  - BLOOD TEST ABNORMAL [None]
  - ARTHRITIS [None]
  - MALABSORPTION [None]
  - SOMNOLENCE [None]
  - INSOMNIA [None]
  - OCULAR DISCOMFORT [None]
  - BRONCHITIS [None]
  - PRURITUS [None]
  - JOINT INJURY [None]
  - BLOOD IRON DECREASED [None]
  - ANXIETY [None]
  - ARTHRALGIA [None]
